FAERS Safety Report 23061908 (Version 2)
Quarter: 2023Q4

REPORT INFORMATION
  Report Type: Spontaneous
  Country: JP (occurrence: JP)
  Receive Date: 20231013
  Receipt Date: 20231130
  Transmission Date: 20240109
  Serious: Yes (Hospitalization)
  Sender: FDA-Public Use
  Company Number: JP-GILEAD-2023-0643843

PATIENT
  Age: 48 Year
  Sex: Female

DRUGS (3)
  1. VEKLURY [Interacting]
     Active Substance: REMDESIVIR
     Indication: COVID-19
     Dosage: UNK
     Route: 065
     Dates: start: 20230909, end: 20230911
  2. LYNPARZA [Interacting]
     Active Substance: OLAPARIB
     Indication: Product used for unknown indication
     Dosage: UNK
     Route: 048
  3. LYNPARZA [Interacting]
     Active Substance: OLAPARIB
     Dosage: UNK
     Route: 048
     Dates: start: 20231002

REACTIONS (2)
  - Neutrophil count decreased [Recovered/Resolved]
  - Drug interaction [Recovered/Resolved]

NARRATIVE: CASE EVENT DATE: 20230913
